FAERS Safety Report 7238287-2 (Version None)
Quarter: 2011Q1

REPORT INFORMATION
  Report Type: 
  Country: None (occurrence: None)
  Receive Date: 20110121
  Receipt Date: 20110112
  Transmission Date: 20110831
  Serious: Yes (Other)
  Sender: FDA-Public Use
  Company Number: NL-JNJFOC-20101207793

PATIENT
  Sex: Female

DRUGS (6)
  1. CALCICHEW D3 [Concomitant]
     Indication: OSTEOPOROSIS
  2. INFLIXIMAB, RECOMBINANT [Suspect]
     Route: 042
  3. FOLIC ACID [Concomitant]
  4. INFLIXIMAB, RECOMBINANT [Suspect]
     Indication: RHEUMATOID ARTHRITIS
     Route: 042
  5. METHOTREXATE [Suspect]
     Indication: RHEUMATOID ARTHRITIS
  6. NAPROXEN [Concomitant]
     Indication: PAIN

REACTIONS (1)
  - SQUAMOUS CELL CARCINOMA [None]
